FAERS Safety Report 12638814 (Version 1)
Quarter: 2016Q3

REPORT INFORMATION
  Report Type: Spontaneous
  Country: US (occurrence: US)
  Receive Date: 20160809
  Receipt Date: 20160809
  Transmission Date: 20161109
  Serious: No
  Sender: FDA-Public Use
  Company Number: US-PERRIGO-15US013177

PATIENT
  Age: 76 Year
  Sex: Female
  Weight: 65.76 kg

DRUGS (1)
  1. DESOXIMETASONE. [Suspect]
     Active Substance: DESOXIMETASONE
     Indication: VULVOVAGINAL DRYNESS
     Dosage: 1 PEA SIZED APPLICATION, QD
     Route: 061
     Dates: end: 20151216

REACTIONS (2)
  - Expired product administered [Recovered/Resolved]
  - Inappropriate schedule of drug administration [Recovered/Resolved]

NARRATIVE: CASE EVENT DATE: 20151101
